FAERS Safety Report 4770036-X (Version None)
Quarter: 2005Q3

REPORT INFORMATION
  Report Type: 
  Country: None (occurrence: None)
  Receive Date: 20050915
  Receipt Date: 20050103
  Transmission Date: 20060218
  Serious: No
  Sender: FDA-Public Use
  Company Number: US-GLAXOSMITHKLINE-A0539386A

PATIENT
  Age: 68 Year
  Sex: Female

DRUGS (1)
  1. ABREVA [Suspect]

REACTIONS (5)
  - CHEILITIS [None]
  - LIP PAIN [None]
  - ORAL DISCOMFORT [None]
  - SKIN ATROPHY [None]
  - SKIN INJURY [None]
